FAERS Safety Report 17213652 (Version 1)
Quarter: 2020Q1

REPORT INFORMATION
  Report Type: Spontaneous
  Country: US (occurrence: US)
  Receive Date: 20191227
  Receipt Date: 20191227
  Transmission Date: 20200409
  Serious: Yes (Death)
  Sender: FDA-Public Use
  Company Number: None

PATIENT
  Age: 54 Year
  Sex: Male

DRUGS (14)
  1. PROMACTA [Suspect]
     Active Substance: ELTROMBOPAG OLAMINE
     Indication: PRODUCT USED FOR UNKNOWN INDICATION
     Route: 048
     Dates: start: 20191015
  2. ALPRAZOLAM TAB 1 MG [Concomitant]
  3. SERTRALINE TAB 100 MG [Concomitant]
  4. OXYCODONE TAB 5 MG [Concomitant]
  5. ATOVAQUONE TAB 200 MG [Concomitant]
  6. FLUCONAZOLE TAB 200 MG [Concomitant]
  7. ONDANSETRON TAB 8 MG ODT [Concomitant]
  8. METOPROLOL TAR TAB 25 MG [Concomitant]
  9. XTAMPZA ER CAP 9 MG [Concomitant]
  10. LEVOFLOXACIN TAB 500 MG [Concomitant]
  11. MAGNESIUM-OX TAB 400 MG [Concomitant]
  12. LOCTULOSE SOL 10GM / 15 [Concomitant]
  13. ACYCLOVIR TAB 800 MG [Concomitant]
  14. GABAPENTIN CAP 300 MG [Concomitant]

REACTIONS (1)
  - Death [None]

NARRATIVE: CASE EVENT DATE: 20191223
